FAERS Safety Report 21937159 (Version 1)
Quarter: 2023Q1

REPORT INFORMATION
  Report Type: Spontaneous
  Country: US (occurrence: None)
  Receive Date: 20230131
  Receipt Date: 20230131
  Transmission Date: 20230417
  Serious: No
  Sender: FDA-Public Use
  Company Number: None

PATIENT
  Age: 51 Year
  Sex: Female

DRUGS (2)
  1. IMATINIB MESYLATE [Suspect]
     Active Substance: IMATINIB MESYLATE
     Indication: Chronic myeloid leukaemia
     Dosage: FREQUENCY : DAILY;?
     Route: 048
     Dates: start: 20230124
  2. IMATINIB MESYLATE [Suspect]
     Active Substance: IMATINIB MESYLATE
     Indication: Philadelphia chromosome positive

REACTIONS (12)
  - Abdominal distension [None]
  - Muscle spasms [None]
  - Back pain [None]
  - Balance disorder [None]
  - Muscle strain [None]
  - Abdominal distension [None]
  - Insomnia [None]
  - Anxiety [None]
  - Faeces soft [None]
  - Constipation [None]
  - Dyschezia [None]
  - Rectal haemorrhage [None]

NARRATIVE: CASE EVENT DATE: 20230128
